FAERS Safety Report 6074501-7 (Version None)
Quarter: 2009Q1

REPORT INFORMATION
  Report Type: 
  Country: None (occurrence: None)
  Receive Date: 20090206
  Receipt Date: 20090123
  Transmission Date: 20090719
  Serious: Yes (Death)
  Sender: FDA-Public Use
  Company Number: 2009BI002684

PATIENT

DRUGS (11)
  1. ZEVALIN [Suspect]
     Indication: B-CELL LYMPHOMA
     Dosage: 32 MCI; 1X
     Dates: start: 20080901, end: 20080901
  2. RITUXIMAB (CON.) [Concomitant]
  3. FLUDARABINE (CON.) [Concomitant]
  4. MELPHALAN (CON.) [Concomitant]
  5. CYCLOSPORINE (CON.) [Concomitant]
  6. METHOTREXATE (CON.) [Concomitant]
  7. FOLIC ACID (CON.) [Concomitant]
  8. G-CSF (CON.) [Concomitant]
  9. ANTIBIOTICS (CON.) [Concomitant]
  10. ANTIFUNGALS (CON.) [Concomitant]
  11. PREV MEDS [Concomitant]

REACTIONS (1)
  - SEPTIC SHOCK [None]
